FAERS Safety Report 5232018-3 (Version None)
Quarter: 2007Q1

REPORT INFORMATION
  Report Type: 
  Country: None (occurrence: None)
  Receive Date: 20070206
  Receipt Date: 20070125
  Transmission Date: 20070707
  Serious: Yes (Life-Threatening)
  Sender: FDA-Public Use
  Company Number: FR-PFIZER INC-2007008660

PATIENT
  Age: 61 Year
  Sex: Male

DRUGS (6)
  1. ATARAX [Suspect]
     Route: 048
  2. GLUCOPHAGE [Suspect]
     Route: 048
  3. SOLUPRED [Suspect]
     Dosage: DAILY DOSE:20MG
     Route: 048
  4. SOLIAN [Suspect]
     Dosage: DAILY DOSE:200MG
     Route: 048
  5. TEGELINE [Suspect]
     Indication: IDIOPATHIC THROMBOCYTOPENIC PURPURA
     Route: 042
     Dates: start: 20061213, end: 20061215
  6. LANZOR [Suspect]
     Dosage: DAILY DOSE:30MG
     Route: 048

REACTIONS (1)
  - RENAL FAILURE [None]
